FAERS Safety Report 6631639-0 (Version None)
Quarter: 2010Q1

REPORT INFORMATION
  Report Type: 
  Country: None (occurrence: None)
  Receive Date: 20100312
  Receipt Date: 20100304
  Transmission Date: 20100710
  Serious: Yes (Other)
  Sender: FDA-Public Use
  Company Number: IE-BRISTOL-MYERS SQUIBB COMPANY-15012545

PATIENT
  Sex: Male
  Weight: 3 kg

DRUGS (3)
  1. ATAZANAVIR [Suspect]
     Route: 064
  2. RITONAVIR [Suspect]
     Route: 064
  3. KIVEXA [Suspect]
     Route: 064

REACTIONS (1)
  - CARDIAC DISORDER [None]
